FAERS Safety Report 10787992 (Version 1)
Quarter: 2015Q1

REPORT INFORMATION
  Report Type: Spontaneous
  Country: US (occurrence: None)
  Receive Date: 20150210
  Receipt Date: 20150210
  Transmission Date: 20150721
  Serious: Yes (Other)
  Sender: FDA-Public Use
  Company Number: 2015SA010961

PATIENT
  Age: 53 Year
  Sex: Female

DRUGS (1)
  1. CORTIZONE 10 [Suspect]
     Active Substance: HYDROCORTISONE
     Indication: SKIN REACTION
     Dates: start: 20150124

REACTIONS (1)
  - Cellulitis [None]
